FAERS Safety Report 4485644-3 (Version None)
Quarter: 2004Q4

REPORT INFORMATION
  Report Type: 
  Country: None (occurrence: None)
  Receive Date: 20041026
  Receipt Date: 20041018
  Transmission Date: 20050328
  Serious: Yes (Hospitalization)
  Sender: FDA-Public Use
  Company Number: US-MERCK-0410USA02688

PATIENT
  Age: 64 Year
  Sex: Female

DRUGS (11)
  1. VIOXX [Suspect]
     Indication: ARTHRITIS
     Route: 048
  2. ASPIRIN [Concomitant]
     Route: 065
  3. METHOTREXATE [Concomitant]
     Route: 065
  4. TRAZODONE HYDROCHLORIDE [Concomitant]
     Route: 065
  5. LEXAPRO [Concomitant]
     Route: 065
  6. ULTRAM [Concomitant]
     Route: 065
  7. NEXIUM [Concomitant]
     Route: 065
  8. ZOCOR [Concomitant]
     Route: 048
  9. CELEBREX [Concomitant]
     Route: 065
  10. MOBIC [Concomitant]
     Route: 065
  11. MAVIK [Concomitant]
     Route: 065

REACTIONS (2)
  - CEREBROVASCULAR ACCIDENT [None]
  - OVERDOSE [None]
